FAERS Safety Report 8269428-6 (Version None)
Quarter: 2012Q2

REPORT INFORMATION
  Report Type: 
  Country: None (occurrence: None)
  Receive Date: 20120409
  Receipt Date: 20120326
  Transmission Date: 20120825
  Serious: No
  Sender: FDA-Public Use
  Company Number: US-ASTRAZENECA-2012SE14681

PATIENT
  Age: 26179 Day
  Sex: Male
  Weight: 77.6 kg

DRUGS (1)
  1. BRILINTA [Suspect]
     Indication: ACUTE CORONARY SYNDROME
     Route: 048

REACTIONS (3)
  - DYSPNOEA [None]
  - RASH [None]
  - INFLUENZA [None]
